FAERS Safety Report 8826431 (Version 4)
Quarter: 2013Q2

REPORT INFORMATION
  Report Type: Report from Study
  Country: US (occurrence: US)
  Receive Date: 20121008
  Receipt Date: 20130531
  Transmission Date: 20140414
  Serious: Yes (Hospitalization, Other)
  Sender: FDA-Public Use
  Company Number: US-JNJFOC-20121002980

PATIENT
  Age: 38 Year
  Sex: Male
  Weight: 138.2 kg

DRUGS (14)
  1. PALIPERIDONE PALMITATE [Suspect]
     Indication: SCHIZOPHRENIA, PARANOID TYPE
     Route: 030
     Dates: start: 20120529
  2. PALIPERIDONE PALMITATE [Suspect]
     Route: 030
  3. PALIPERIDONE PALMITATE [Suspect]
     Indication: SCHIZOPHRENIA, PARANOID TYPE
     Dosage: NO DRUG GIVEN
     Route: 030
  4. ENALAPRIL [Concomitant]
     Indication: HYPERTENSION
     Route: 048
     Dates: start: 2008
  5. CARVEDILOL [Concomitant]
     Indication: HYPERTENSION
     Route: 048
     Dates: start: 2008
  6. SIMVASTATIN [Concomitant]
     Indication: HYPERCHOLESTEROLAEMIA
     Route: 048
     Dates: start: 20120927
  7. LISINOPRIL [Concomitant]
     Indication: HYPERTENSION
     Route: 048
     Dates: start: 20120927
  8. TYLENOL [Concomitant]
     Indication: HEADACHE
     Dosage: 2 TABLETS
     Route: 048
     Dates: start: 20120927, end: 20121001
  9. ZOLPIDEM [Concomitant]
     Indication: INSOMNIA
     Dosage: 2 TABLETS
     Route: 048
     Dates: start: 20100827, end: 20120827
  10. ZOLPIDEM [Concomitant]
     Indication: INSOMNIA
     Dosage: 2 TABLETS
     Route: 048
     Dates: start: 201012, end: 20120605
  11. ZOLPIDEM [Concomitant]
     Indication: INSOMNIA
     Dosage: 2 TABLETS
     Route: 048
     Dates: start: 20100802, end: 20120805
  12. ZOLPIDEM [Concomitant]
     Indication: INSOMNIA
     Dosage: 2 TABLETS
     Route: 048
     Dates: start: 20100812, end: 20120813
  13. ZOLPIDEM [Concomitant]
     Indication: INSOMNIA
     Dosage: 2 TABLETS
     Route: 048
     Dates: start: 20100820, end: 20120820
  14. ZOLPIDEM [Concomitant]
     Indication: INSOMNIA
     Dosage: 2 TABLETS
     Route: 048
     Dates: start: 20100831, end: 20120903

REACTIONS (1)
  - Diabetic ketoacidosis [Recovered/Resolved]
